FAERS Safety Report 7690128-5 (Version None)
Quarter: 2011Q3

REPORT INFORMATION
  Report Type: 
  Country: None (occurrence: None)
  Receive Date: 20110818
  Receipt Date: 20110114
  Transmission Date: 20111222
  Serious: No
  Sender: FDA-Public Use
  Company Number: US-BAYER-2011-005492

PATIENT
  Sex: Female

DRUGS (1)
  1. MIRENA [Suspect]
     Indication: CONTRACEPTION
     Dosage: 20 MCG/24HR, CONT

REACTIONS (9)
  - BREAST TENDERNESS [None]
  - HEADACHE [None]
  - PAIN [None]
  - FATIGUE [None]
  - CHILLS [None]
  - MUSCLE SPASMS [None]
  - UNEVALUABLE EVENT [None]
  - ABDOMINAL PAIN [None]
  - ABDOMINAL DISTENSION [None]
